FAERS Safety Report 9211015 (Version 1)
Quarter: 2013Q2

REPORT INFORMATION
  Report Type: Spontaneous
  Country: FR (occurrence: FR)
  Receive Date: 20130404
  Receipt Date: 20130404
  Transmission Date: 20140414
  Serious: Yes (Death, Hospitalization)
  Sender: FDA-Public Use
  Company Number: FR-BRISTOL-MYERS SQUIBB COMPANY-18718619

PATIENT
  Age: 72 Year
  Sex: Male

DRUGS (18)
  1. COUMADINE [Suspect]
     Indication: ARRHYTHMIA SUPRAVENTRICULAR
     Dosage: 11FEB13:6MG?12FEB,13FEB,14FEB,15FEB:7MG?16FEB:5MG
     Route: 048
     Dates: end: 20130216
  2. ASPEGIC [Suspect]
     Dosage: 1 DF:1 ASPEGIC NOURRISSONS 100 MG
     Route: 048
     Dates: end: 20130217
  3. AMOXICILLIN + CLAVULANIC ACID [Interacting]
     Indication: URINARY TRACT INFECTION
     Dosage: 1 DF:3 AMOXICILLIN 1G / CLAVULANIC ACID 125 MG MYLAN PER DAY
     Route: 048
     Dates: start: 20130215, end: 20130218
  4. CLAMOXYL [Interacting]
     Indication: URINARY TRACT INFECTION
     Dosage: ORAL
     Route: 042
     Dates: start: 20130211, end: 20130216
  5. CONTRAMAL [Interacting]
     Indication: PAIN
     Dosage: 1DF:2 50MG TABS,BID?17FEB,14FEB:2 TABS:BID?16FEB:1 TAB:QD?15FEB:1 TAB:BID
     Dates: start: 20130214, end: 20130218
  6. ALDACTONE [Concomitant]
     Dosage: 1 DF:25 UNITS NOS
  7. TAHOR [Concomitant]
     Dosage: 1DF:40 UNITS NOS
  8. KARDEGIC [Concomitant]
  9. COVERSYL [Concomitant]
     Dosage: 1DF:2.5 UNITS NOS
  10. CARDENSIEL [Concomitant]
     Dosage: 1DF:5 UNITS NOS
  11. SPECIAFOLDINE [Concomitant]
  12. LEVOTHYROX [Concomitant]
  13. INEXIUM [Concomitant]
  14. LASILIX [Concomitant]
     Dosage: 1DF:HALF OF LASILIX 500MG
  15. CORDARONE [Concomitant]
     Dosage: 1DF:1 UNITS NOS
  16. NOCTAMIDE [Concomitant]
     Dosage: 1DF: HALF OF NOCTAMIDE 2 MG
  17. LACTULOSE [Concomitant]
     Dosage: 1DF: 2 UNITS NOS
  18. ESIDREX [Concomitant]

REACTIONS (3)
  - Subdural haematoma [Fatal]
  - Renal failure acute [Unknown]
  - International normalised ratio increased [Unknown]
